FAERS Safety Report 18806959 (Version 1)
Quarter: 2021Q1

REPORT INFORMATION
  Report Type: Report from Study
  Country: US (occurrence: US)
  Receive Date: 20210129
  Receipt Date: 20210129
  Transmission Date: 20210419
  Serious: Yes (Other)
  Sender: FDA-Public Use
  Company Number: US-EMD SERONO-9214166

PATIENT
  Sex: Female

DRUGS (1)
  1. REBIF [Suspect]
     Active Substance: INTERFERON BETA-1A
     Indication: PRODUCT USED FOR UNKNOWN INDICATION
     Route: 058
     Dates: start: 20191213

REACTIONS (6)
  - Product quality issue [Unknown]
  - Deafness [Unknown]
  - Nervousness [Unknown]
  - Hypoaesthesia [Unknown]
  - Tinnitus [Unknown]
  - Burning sensation [Unknown]
